FAERS Safety Report 20485821 (Version 1)
Quarter: 2022Q1

REPORT INFORMATION
  Report Type: Spontaneous
  Country: US (occurrence: US)
  Receive Date: 20220217
  Receipt Date: 20220217
  Transmission Date: 20220423
  Serious: Yes (Death, Hospitalization, Other)
  Sender: FDA-Public Use
  Company Number: US-PFIZER INC-202200249930

PATIENT
  Age: 51 Year
  Sex: Male

DRUGS (6)
  1. CELECOXIB [Suspect]
     Active Substance: CELECOXIB
     Dosage: UNK (INGESTION)
     Route: 048
  2. CYCLOBENZAPRINE [Suspect]
     Active Substance: CYCLOBENZAPRINE
     Dosage: UNK (INGESTION)
     Route: 048
  3. TRAMADOL [Suspect]
     Active Substance: TRAMADOL
     Dosage: UNK (INGESTION)
     Route: 048
  4. ACETAMINOPHEN\CODEINE PHOSPHATE [Suspect]
     Active Substance: ACETAMINOPHEN\CODEINE PHOSPHATE
     Dosage: UNK (INGESTION)
     Route: 048
  5. INDOMETHACIN [Suspect]
     Active Substance: INDOMETHACIN
     Dosage: UNK (INGESTION)
     Route: 048
  6. MELOXICAM [Suspect]
     Active Substance: MELOXICAM
     Dosage: UNK (INGESTION)
     Route: 048

REACTIONS (2)
  - Intentional product misuse [Fatal]
  - Death [Fatal]

NARRATIVE: CASE EVENT DATE: 20200101
